FAERS Safety Report 9348013 (Version 1)
Quarter: 2013Q2

REPORT INFORMATION
  Report Type: Report from Study
  Country: CA (occurrence: CA)
  Receive Date: 20130614
  Receipt Date: 20130614
  Transmission Date: 20140414
  Serious: Yes (Other)
  Sender: FDA-Public Use
  Company Number: CA-ROCHE-1236737

PATIENT
  Age: 66 Year
  Sex: Female
  Weight: 59 kg

DRUGS (5)
  1. ACTEMRA [Suspect]
     Indication: RHEUMATOID ARTHRITIS
     Route: 042
     Dates: start: 20110421
  2. SYNTHROID [Concomitant]
  3. IMURAN [Concomitant]
  4. VITAMIN C [Concomitant]
  5. FISH OIL [Concomitant]

REACTIONS (1)
  - Joint arthroplasty [Unknown]
